FAERS Safety Report 19005128 (Version 2)
Quarter: 2021Q2

REPORT INFORMATION
  Report Type: Spontaneous
  Country: US (occurrence: US)
  Receive Date: 20210312
  Receipt Date: 20210414
  Transmission Date: 20210717
  Serious: Yes (Other)
  Sender: FDA-Public Use
  Company Number: US-PURDUE-USA-2020-0229787

PATIENT
  Sex: Male

DRUGS (4)
  1. LORTAB [Suspect]
     Active Substance: ACETAMINOPHEN\HYDROCODONE BITARTRATE
     Indication: PRODUCT USED FOR UNKNOWN INDICATION
     Dosage: UNK
     Route: 065
  2. DILAUDID [Suspect]
     Active Substance: HYDROMORPHONE HYDROCHLORIDE
     Indication: PRODUCT USED FOR UNKNOWN INDICATION
     Dosage: UNK
     Route: 048
  3. HYDROCODONE BITARTRATE AND ACETAMINOPHEN [Suspect]
     Active Substance: ACETAMINOPHEN\HYDROCODONE BITARTRATE
     Indication: PRODUCT USED FOR UNKNOWN INDICATION
     Dosage: UNK
     Route: 048
  4. NORCO [Suspect]
     Active Substance: ACETAMINOPHEN\HYDROCODONE BITARTRATE
     Indication: PRODUCT USED FOR UNKNOWN INDICATION
     Dosage: UNK
     Route: 065

REACTIONS (22)
  - Myalgia [Unknown]
  - Bone pain [Unknown]
  - Mental impairment [Unknown]
  - Hyperaesthesia [Unknown]
  - Sleep disorder [Unknown]
  - Chills [Unknown]
  - Nausea [Unknown]
  - Overdose [Unknown]
  - Nervous system disorder [Unknown]
  - Vomiting [Unknown]
  - Constipation [Unknown]
  - Depression [Unknown]
  - Mental disorder [Unknown]
  - Decreased appetite [Unknown]
  - Cold sweat [Unknown]
  - Influenza like illness [Unknown]
  - Anxiety [Unknown]
  - Diarrhoea [Unknown]
  - Respiratory rate decreased [Unknown]
  - Nasopharyngitis [Unknown]
  - Drug dependence [Unknown]
  - Drug withdrawal syndrome [Unknown]
